FAERS Safety Report 23557988 (Version 2)
Quarter: 2024Q2

REPORT INFORMATION
  Report Type: Spontaneous
  Country: US (occurrence: US)
  Receive Date: 20240223
  Receipt Date: 20240523
  Transmission Date: 20240716
  Serious: No
  Sender: FDA-Public Use
  Company Number: US-MIMS-BCONMC-2810

PATIENT

DRUGS (2)
  1. INSULIN GLARGINE [Suspect]
     Active Substance: INSULIN GLARGINE
     Indication: Type 2 diabetes mellitus
     Dosage: 46 UNITS/ML, QD, AT EVENING FOR AROUND 1 YEAR
     Route: 065
  2. PROTAMINE [Concomitant]
     Active Substance: PROTAMINE
     Indication: Type 2 diabetes mellitus
     Dosage: 16 MG, BID
     Route: 065

REACTIONS (1)
  - Device mechanical issue [Unknown]
